FAERS Safety Report 15397357 (Version 1)
Quarter: 2018Q3

REPORT INFORMATION
  Report Type: Spontaneous
  Country: US (occurrence: US)
  Receive Date: 20180911
  Receipt Date: 20180911
  Transmission Date: 20181010
  Serious: No
  Sender: FDA-Public Use
  Company Number: None

PATIENT
  Age: 78 Year
  Sex: Female

DRUGS (1)
  1. TALTZ [Suspect]
     Active Substance: IXEKIZUMAB
     Indication: PSORIASIS
     Dosage: INJECT 80MG (1PEN) SUBCUTANEOULSY EVERY 2 AT  WEEK 4? 12 AS DIRECTED
     Route: 058
     Dates: start: 201808

REACTIONS (1)
  - Abdominal pain upper [None]
